FAERS Safety Report 6579224-3 (Version None)
Quarter: 2010Q1

REPORT INFORMATION
  Report Type: 
  Country: None (occurrence: None)
  Receive Date: 20100212
  Receipt Date: 20100203
  Transmission Date: 20100710
  Serious: Yes (Hospitalization)
  Sender: FDA-Public Use
  Company Number: CA-JNJFOC-20090708649

PATIENT
  Sex: Male
  Weight: 92 kg

DRUGS (1)
  1. REMICADE [Suspect]
     Indication: COLITIS ULCERATIVE
     Route: 042
     Dates: start: 20070901, end: 20090611

REACTIONS (4)
  - ACUTE PULMONARY OEDEMA [None]
  - LUNG NEOPLASM [None]
  - METASTASIS [None]
  - PULMONARY THROMBOSIS [None]
